FAERS Safety Report 7380866-6 (Version None)
Quarter: 2011Q1

REPORT INFORMATION
  Report Type: 
  Country: None (occurrence: None)
  Receive Date: 20110329
  Receipt Date: 20110314
  Transmission Date: 20110831
  Serious: Yes (Other)
  Sender: FDA-Public Use
  Company Number: PHHY2011BR20986

PATIENT
  Sex: Female

DRUGS (5)
  1. EXELON [Suspect]
     Indication: DEMENTIA ALZHEIMER'S TYPE
     Dosage: 1.5 MG, QD
     Route: 048
  2. ALOIS [Concomitant]
     Dosage: 10 MG, UNK
  3. EXELON [Suspect]
     Dosage: 3 MG, UNK
  4. EXELON [Suspect]
     Dosage: 4.5 MG, UNK
  5. EXELON [Suspect]
     Dosage: 6 MG, BID
     Route: 048

REACTIONS (5)
  - LABYRINTHITIS [None]
  - HEADACHE [None]
  - URINARY TRACT INFECTION [None]
  - ABDOMINAL PAIN [None]
  - DIZZINESS [None]
